FAERS Safety Report 9523249 (Version 1)
Quarter: 2013Q3

REPORT INFORMATION
  Report Type: Spontaneous
  Country: AU (occurrence: AU)
  Receive Date: 20130913
  Receipt Date: 20130913
  Transmission Date: 20140515
  Serious: Yes (Other)
  Sender: FDA-Public Use
  Company Number: PHHY2013AU100377

PATIENT
  Age: 30 Year
  Sex: Male

DRUGS (2)
  1. IMATINIB [Suspect]
     Dosage: 400 MG, DAILY
  2. IMATINIB [Suspect]
     Dosage: 400 MG, TWICE A DAY

REACTIONS (8)
  - Schwannoma [Unknown]
  - Balance disorder [Unknown]
  - Dizziness [Unknown]
  - Nausea [Unknown]
  - Vomiting [Unknown]
  - Abdominal pain [Unknown]
  - Headache [Unknown]
  - Deafness [Unknown]
